FAERS Safety Report 25589445 (Version 1)
Quarter: 2025Q3

REPORT INFORMATION
  Report Type: Spontaneous
  Country: US (occurrence: US)
  Receive Date: 20250722
  Receipt Date: 20250722
  Transmission Date: 20251020
  Serious: Yes (Hospitalization)
  Sender: ADVANZ PHARMA
  Company Number: US-ADVANZ PHARMA-202507006035

PATIENT

DRUGS (4)
  1. HYDROXYCHLOROQUINE [Suspect]
     Active Substance: HYDROXYCHLOROQUINE
     Indication: Systemic lupus erythematosus
  2. VANCOMYCIN [Concomitant]
     Active Substance: VANCOMYCIN
  3. CEFEPIME [Concomitant]
     Active Substance: CEFEPIME HYDROCHLORIDE
  4. ACYCLOVIR [Concomitant]
     Active Substance: ACYCLOVIR

REACTIONS (1)
  - Catatonia [Recovering/Resolving]
